FAERS Safety Report 16142764 (Version 1)
Quarter: 2019Q2

REPORT INFORMATION
  Report Type: Report from Study
  Country: IL (occurrence: IL)
  Receive Date: 20190401
  Receipt Date: 20190401
  Transmission Date: 20190711
  Serious: Yes (Death, Hospitalization)
  Sender: FDA-Public Use
  Company Number: IL-BRISTOL-MYERS SQUIBB COMPANY-BMS-2019-031420

PATIENT
  Age: 81 Year
  Sex: Male

DRUGS (11)
  1. UBIQUINOL [Concomitant]
     Active Substance: UBIQUINOL
     Indication: ADVERSE EVENT
     Dosage: 100 MILLIGRAM, QD
     Route: 048
     Dates: start: 201810
  2. DERMACOL [Concomitant]
     Active Substance: COSMETICS
     Indication: PRODUCT USED FOR UNKNOWN INDICATION
     Dosage: UNK, QD
     Route: 061
     Dates: start: 20190123
  3. FEXOFENADINE [Concomitant]
     Active Substance: FEXOFENADINE\FEXOFENADINE HYDROCHLORIDE
     Indication: PRODUCT USED FOR UNKNOWN INDICATION
     Dosage: 180 MILLIGRAM, BID
     Route: 065
     Dates: start: 20190122
  4. BERBERINE [Concomitant]
     Active Substance: BERBERINE
     Indication: ADVERSE EVENT
     Dosage: 500 MILLIGRAM, BID
     Route: 048
     Dates: start: 201810
  5. NIVOLUMAB [Suspect]
     Active Substance: NIVOLUMAB
     Indication: KAPOSI^S SARCOMA
     Dosage: 240 MILLIGRAM
     Route: 042
     Dates: start: 20190123
  6. ELTROXIN [Concomitant]
     Active Substance: LEVOTHYROXINE
     Indication: HYPOTHYROIDISM
     Dosage: 100 MICROGRAM, QD
     Route: 048
     Dates: start: 1999
  7. CANNABIS [Concomitant]
     Active Substance: CANNABIS SATIVA SUBSP. INDICA TOP
     Indication: PRODUCT USED FOR UNKNOWN INDICATION
     Dosage: QD, INHALATION
     Route: 065
     Dates: start: 20181023
  8. NERIDERM [Concomitant]
     Indication: PRODUCT USED FOR UNKNOWN INDICATION
     Dosage: UNK, QD
     Route: 061
     Dates: start: 20190122
  9. IPILIMUMAB [Suspect]
     Active Substance: IPILIMUMAB
     Indication: KAPOSI^S SARCOMA
     Dosage: 1 MILLIGRAM/KILOGRAM
     Route: 042
     Dates: start: 20190123
  10. VITAMIN D                          /00318501/ [Concomitant]
     Active Substance: CHOLECALCIFEROL
     Indication: ADVERSE EVENT
     Dosage: 650 MILLIGRAM, QD
     Route: 048
     Dates: start: 2015
  11. CANNABIS [Concomitant]
     Active Substance: CANNABIS SATIVA SUBSP. INDICA TOP
     Indication: PRODUCT USED FOR UNKNOWN INDICATION
     Dosage: 1 DROP, QD
     Route: 048
     Dates: start: 20181023

REACTIONS (7)
  - Lipase abnormal [Fatal]
  - General physical health deterioration [Fatal]
  - Nausea [Fatal]
  - Amylase abnormal [Fatal]
  - Diarrhoea [Fatal]
  - Asthenia [Fatal]
  - Vomiting [Fatal]

NARRATIVE: CASE EVENT DATE: 20190323
